FAERS Safety Report 6142957-7 (Version None)
Quarter: 2009Q2

REPORT INFORMATION
  Report Type: 
  Country: None (occurrence: None)
  Receive Date: 20090401
  Receipt Date: 20090320
  Transmission Date: 20091009
  Serious: Yes (Hospitalization)
  Sender: FDA-Public Use
  Company Number: 233158K09USA

PATIENT
  Age: 43 Year
  Sex: Female

DRUGS (7)
  1. REBIF [Suspect]
     Indication: MULTIPLE SCLEROSIS
     Dosage: 44 MCG, 3 IN 1 WEEKS, SUBCUTANEOUS
     Route: 058
     Dates: start: 20080807, end: 20090201
  2. MELOXICAM [Concomitant]
  3. PROTONIX [Concomitant]
  4. TIZANIDINE (ITZANIDINE) [Concomitant]
  5. MULTIVITAMIN (MULTIVITAMIN) [Concomitant]
  6. DOXYCYCLINE [Concomitant]
  7. PROMETHAZINE WITH CODEING (PROMETHAZINE W/CODEINE) [Concomitant]

REACTIONS (4)
  - BIPOLAR DISORDER [None]
  - FAMILY STRESS [None]
  - PAIN IN EXTREMITY [None]
  - VICTIM OF CRIME [None]
